FAERS Safety Report 9278776 (Version 3)
Quarter: 2013Q2

REPORT INFORMATION
  Report Type: Spontaneous
  Country: JP (occurrence: JP)
  Receive Date: 20130508
  Receipt Date: 20130606
  Transmission Date: 20140414
  Serious: Yes (Other)
  Sender: FDA-Public Use
  Company Number: JP-PFIZER INC-2013141624

PATIENT
  Age: 87 Year
  Sex: Male
  Weight: 41.8 kg

DRUGS (1)
  1. ATARAX-P [Suspect]
     Dosage: 25 MG, ONCE DAILY (EVENING)
     Route: 048
     Dates: start: 20130326, end: 20130502

REACTIONS (2)
  - White blood cell count decreased [Recovering/Resolving]
  - Red blood cell count decreased [Unknown]
